FAERS Safety Report 9008978 (Version 1)
Quarter: 2013Q1

REPORT INFORMATION
  Report Type: Spontaneous
  Country: US (occurrence: US)
  Receive Date: 20130112
  Receipt Date: 20130112
  Transmission Date: 20140127
  Serious: Yes (Other)
  Sender: FDA-Public Use
  Company Number: US-009507513-0909USA02963

PATIENT
  Age: 2 Year
  Sex: Male
  Weight: 15.88 kg

DRUGS (1)
  1. SINGULAIR [Suspect]
     Indication: ASTHMA
     Dosage: 4 MG, QPM
     Route: 048
     Dates: start: 20081123, end: 20081231

REACTIONS (4)
  - Hallucination, visual [Unknown]
  - Aggression [Unknown]
  - Irritability [Unknown]
  - Abnormal behaviour [Unknown]
